FAERS Safety Report 26043050 (Version 1)
Quarter: 2025Q4

REPORT INFORMATION
  Report Type: Spontaneous
  Country: EU (occurrence: EU)
  Receive Date: 20251113
  Receipt Date: 20251113
  Transmission Date: 20260118
  Serious: Yes (Life-Threatening, Other)
  Sender: MERCK SHARP & DOHME LLC
  Company Number: None

PATIENT
  Age: 67 Year
  Sex: Male
  Weight: 71.4 kg

DRUGS (4)
  1. KEYTRUDA [Suspect]
     Active Substance: PEMBROLIZUMAB
     Indication: Oesophageal adenocarcinoma
     Route: 042
     Dates: start: 20250425, end: 20250812
  2. FLUOROURACIL [Concomitant]
     Active Substance: FLUOROURACIL
     Route: 065
     Dates: start: 20250516
  3. OXALIPLATIN ACCORD 5 mg/ml, concentrate for solution for infusion [Concomitant]
     Route: 042
     Dates: start: 20250516, end: 20250812
  4. HERCEPTIN [Suspect]
     Active Substance: TRASTUZUMAB
     Indication: Oesophageal adenocarcinoma
     Route: 042
     Dates: start: 20250425, end: 20250812

REACTIONS (2)
  - Pneumonia [Recovering/Resolving]
  - Thrombocytopenia [Recovering/Resolving]

NARRATIVE: CASE EVENT DATE: 20250813
